FAERS Safety Report 4536665-3 (Version None)
Quarter: 2004Q4

REPORT INFORMATION
  Report Type: 
  Country: None (occurrence: None)
  Receive Date: 20041220
  Receipt Date: 20041207
  Transmission Date: 20050328
  Serious: Yes (Death)
  Sender: FDA-Public Use
  Company Number: USA-2004-0013363

PATIENT
  Age: 62 Year
  Sex: Female
  Weight: 127.4 kg

DRUGS (11)
  1. OXYCONTIN [Suspect]
     Indication: PAIN
     Dosage: 20 MG, Q12H
     Dates: start: 20010918, end: 20010924
  2. PERCOCET [Suspect]
     Indication: PAIN
  3. FLEXERIL [Suspect]
  4. ACETAMINOPHEN [Suspect]
  5. PROPOXYPHENE (DEXTROPROPOXYPHENE) [Suspect]
  6. BUPROPION HCL [Concomitant]
  7. FOSAMAX [Concomitant]
  8. PRILOSEC [Concomitant]
  9. DIAZEPAM [Suspect]
  10. METOCLOPRAMIDE [Suspect]
  11. PROMETHAZINE [Suspect]

REACTIONS (14)
  - ADHESION [None]
  - ASTHMA [None]
  - CARDIOMEGALY [None]
  - CORONARY ARTERY ATHEROSCLEROSIS [None]
  - DEPRESSION [None]
  - DILATATION VENTRICULAR [None]
  - DRUG INEFFECTIVE [None]
  - HYPERTENSIVE HEART DISEASE [None]
  - LUNG DISORDER [None]
  - PULMONARY OEDEMA [None]
  - SMOKER [None]
  - SOMNOLENCE [None]
  - TREATMENT NONCOMPLIANCE [None]
  - VENTRICULAR HYPERTROPHY [None]
